FAERS Safety Report 9113875 (Version 2)
Quarter: 2013Q1

REPORT INFORMATION
  Report Type: Spontaneous
  Country: US (occurrence: US)
  Receive Date: 20130129
  Receipt Date: 20130301
  Transmission Date: 20140127
  Serious: No
  Sender: FDA-Public Use
  Company Number: US-PFIZER INC-2013034213

PATIENT
  Sex: Female

DRUGS (1)
  1. LYRICA [Suspect]
     Dosage: 50 MG, 1X/DAY
     Route: 048

REACTIONS (6)
  - Arthritis [Unknown]
  - Arthralgia [Unknown]
  - Somnolence [Unknown]
  - Dizziness [Unknown]
  - Disturbance in attention [Unknown]
  - Anger [Unknown]
